FAERS Safety Report 8451286-8 (Version None)
Quarter: 2012Q2

REPORT INFORMATION
  Report Type: 
  Country: None (occurrence: None)
  Receive Date: 20120620
  Receipt Date: 20120319
  Transmission Date: 20120825
  Serious: No
  Sender: FDA-Public Use
  Company Number: US-VERTEX PHARMACEUTICALS INC.-AE-2012-002328

PATIENT
  Sex: Male
  Weight: 93.07 kg

DRUGS (8)
  1. PEGASYS [Concomitant]
     Indication: HEPATITIS C
     Route: 058
     Dates: start: 20120131
  2. NOVOLIN 70/30 [Concomitant]
     Indication: DIABETES MELLITUS
     Route: 058
  3. NEURONTIN [Concomitant]
     Indication: NEURALGIA
     Route: 048
  4. INCIVEK [Suspect]
     Indication: HEPATITIS C
     Route: 048
     Dates: start: 20120131
  5. METFORMIN HCL [Concomitant]
     Indication: DIABETES MELLITUS
     Route: 048
  6. RIBAVIRIN [Concomitant]
     Indication: HEPATITIS C
     Route: 048
     Dates: start: 20120131
  7. IBUPROFEN (ADVIL) [Concomitant]
     Indication: DISCOMFORT
     Route: 048
  8. HIGH BLOOD PRESSURE MEDICATIONS [Concomitant]
     Indication: HYPERTENSION

REACTIONS (16)
  - DIZZINESS [None]
  - ANXIETY [None]
  - DYSPNOEA [None]
  - DISTURBANCE IN ATTENTION [None]
  - HYPERHIDROSIS [None]
  - DIARRHOEA [None]
  - NAUSEA [None]
  - SKIN DISCOMFORT [None]
  - FATIGUE [None]
  - HAEMATEMESIS [None]
  - VOMITING [None]
  - HEADACHE [None]
  - IRRITABILITY [None]
  - DRUG WITHDRAWAL SYNDROME [None]
  - NEGATIVE THOUGHTS [None]
  - PRESYNCOPE [None]
